FAERS Safety Report 16438000 (Version 3)
Quarter: 2020Q3

REPORT INFORMATION
  Report Type: Report from Study
  Country: US (occurrence: US)
  Receive Date: 20190617
  Receipt Date: 20200731
  Transmission Date: 20201102
  Serious: Yes (Hospitalization)
  Sender: FDA-Public Use
  Company Number: US-BIOGEN-2019BI00751421

PATIENT
  Sex: Female

DRUGS (3)
  1. TECFIDERA [Suspect]
     Active Substance: DIMETHYL FUMARATE
     Indication: MULTIPLE SCLEROSIS
     Dosage: STARTING DOSE
     Route: 048
     Dates: start: 20150127, end: 20150203
  2. TECFIDERA [Suspect]
     Active Substance: DIMETHYL FUMARATE
     Route: 048
     Dates: start: 20150127
  3. TECFIDERA [Suspect]
     Active Substance: DIMETHYL FUMARATE
     Dosage: MAINTENANCE DOSE
     Route: 048
     Dates: start: 20150203

REACTIONS (9)
  - Hemiplegia [Unknown]
  - Concussion [Unknown]
  - Skin lesion [Unknown]
  - Meningioma [Recovered/Resolved]
  - Neurological procedural complication [Not Recovered/Not Resolved]
  - Stress [Unknown]
  - Eye disorder [Unknown]
  - Frustration tolerance decreased [Unknown]
  - Allergy to arthropod sting [Unknown]
